FAERS Safety Report 7556962-7 (Version None)
Quarter: 2011Q2

REPORT INFORMATION
  Report Type: 
  Country: None (occurrence: None)
  Receive Date: 20110620
  Receipt Date: 20110608
  Transmission Date: 20111010
  Serious: Yes (Other)
  Sender: FDA-Public Use
  Company Number: PHHY2011US50854

PATIENT
  Sex: Female

DRUGS (2)
  1. EXTAVIA [Suspect]
     Dates: start: 20110606
  2. EXTAVIA [Suspect]
     Indication: MULTIPLE SCLEROSIS
     Dosage: 0.25 MG, QOD
     Route: 062
     Dates: start: 20100716

REACTIONS (2)
  - HEPATOMEGALY [None]
  - ABDOMINAL PAIN [None]
